FAERS Safety Report 18706695 (Version 1)
Quarter: 2021Q1

REPORT INFORMATION
  Report Type: Spontaneous
  Country: US (occurrence: US)
  Receive Date: 20210106
  Receipt Date: 20210106
  Transmission Date: 20210419
  Serious: No
  Sender: FDA-Public Use
  Company Number: US-TOLMAR, INC.-20US024482

PATIENT
  Age: 69 Year
  Sex: Male

DRUGS (2)
  1. TRETINOIN. [Suspect]
     Active Substance: TRETINOIN
     Indication: MALIGNANT MELANOMA IN SITU
     Dosage: 1 DOSAGE FORM, QD
     Route: 065
  2. IMIQUIMOD. [Suspect]
     Active Substance: IMIQUIMOD
     Indication: MALIGNANT MELANOMA IN SITU
     Dosage: 5 DOSAGE FORM, 1/WEEK
     Route: 061

REACTIONS (3)
  - Off label use [Unknown]
  - Pruritus [Recovered/Resolved]
  - Erythema [Recovered/Resolved]
